FAERS Safety Report 12979469 (Version 2)
Quarter: 2017Q1

REPORT INFORMATION
  Report Type: Spontaneous
  Country: NO (occurrence: NO)
  Receive Date: 20161128
  Receipt Date: 20170120
  Transmission Date: 20170428
  Serious: Yes (Hospitalization, Other)
  Sender: FDA-Public Use
  Company Number: NO-PFIZER INC-2016541992

PATIENT
  Age: 79 Year
  Sex: Male

DRUGS (6)
  1. SUTENT [Suspect]
     Active Substance: SUNITINIB MALATE
     Dosage: TRIED TO INCREASE TO 50 MG DAILY
  2. SUTENT [Suspect]
     Active Substance: SUNITINIB MALATE
     Dosage: 37.5 MG, DAILY. CHANGED THE REGIME TO TWO WEEKS ON AND ONE WEEK OFF
     Route: 048
     Dates: start: 201502
  3. SUTENT [Suspect]
     Active Substance: SUNITINIB MALATE
     Dosage: REDUCED TO 37.5 MG DAILY AND HAD BEEN USING THAT DOSE SINCE
  4. INSULIN [Concomitant]
     Active Substance: INSULIN NOS
     Indication: DIABETES MELLITUS
  5. SUTENT [Suspect]
     Active Substance: SUNITINIB MALATE
     Indication: METASTATIC RENAL CELL CARCINOMA
     Dosage: 50 MG, DAILY FOR 28 DAYS BEFORE 14 DAYS PAUSE
     Route: 048
     Dates: start: 20130521
  6. SUTENT [Suspect]
     Active Substance: SUNITINIB MALATE
     Dosage: REDUCTION OF THE DOSE TO 37.5 MG DAILY FOR 28 DAYS
     Dates: start: 2013, end: 201502

REACTIONS (12)
  - Neoplasm progression [Unknown]
  - Urinary retention [Recovered/Resolved]
  - Pain [Unknown]
  - Glomerular filtration rate decreased [Recovered/Resolved]
  - Hypogeusia [Recovered/Resolved]
  - Confusional state [Recovered/Resolved]
  - Acid base balance abnormal [Recovered/Resolved]
  - Hypertension [Recovered/Resolved]
  - Blood glucose increased [Recovered/Resolved]
  - Mucous membrane disorder [Unknown]
  - Malaise [Recovered/Resolved]
  - Blood potassium increased [Recovered/Resolved]

NARRATIVE: CASE EVENT DATE: 201306
